FAERS Safety Report 6723218-1 (Version None)
Quarter: 2010Q2

REPORT INFORMATION
  Report Type: 
  Country: None (occurrence: None)
  Receive Date: 20100513
  Receipt Date: 20100503
  Transmission Date: 20101027
  Serious: Yes (Hospitalization)
  Sender: FDA-Public Use
  Company Number: US-JNJFOC-20100403069

PATIENT
  Sex: Male

DRUGS (13)
  1. REMICADE [Suspect]
     Indication: INFLAMMATORY BOWEL DISEASE
     Route: 042
  2. REMICADE [Suspect]
     Dosage: X 2 DOSES; DATES, DOSE NOT PROVIDED
     Route: 042
  3. PENTASA [Concomitant]
  4. PREVACID [Concomitant]
  5. FLOVENT [Concomitant]
     Route: 055
  6. MULTI-VITAMINS [Concomitant]
  7. CALCIUM [Concomitant]
  8. IRON [Concomitant]
  9. BACITRACIN TOPICAL OINTMENT [Concomitant]
  10. VENTOLIN [Concomitant]
     Route: 055
  11. AMOXICILLIN [Concomitant]
  12. GUAIFENESIN [Concomitant]
  13. BENADRYL [Concomitant]

REACTIONS (4)
  - BACTERIAL INFECTION [None]
  - BRONCHITIS [None]
  - DERMATITIS PSORIASIFORM [None]
  - EAR INFECTION [None]
